FAERS Safety Report 4759443-9 (Version None)
Quarter: 2005Q3

REPORT INFORMATION
  Report Type: 
  Country: None (occurrence: None)
  Receive Date: 20050831
  Receipt Date: 20050819
  Transmission Date: 20060218
  Serious: Yes (Other)
  Sender: FDA-Public Use
  Company Number: US-2004-029819

PATIENT
  Age: 74 Year
  Sex: Female
  Weight: 54.4 kg

DRUGS (6)
  1. CLIMARA [Suspect]
     Indication: OSTEOPOROSIS
     Dosage: UNK MG/D, CONT, TRANSDERMAL
     Route: 062
  2. PREMARIN [Suspect]
     Indication: HORMONE REPLACEMENT THERAPY
  3. PROVERA [Suspect]
     Indication: HORMONE REPLACEMENT THERAPY
  4. PREMPRO [Suspect]
     Indication: HORMONE REPLACEMENT THERAPY
  5. ESTROGEN NOS (ESTROGEN NOS) [Suspect]
     Indication: HORMONE REPLACEMENT THERAPY
  6. MEDROXYPROGESTERONE ACETATE [Suspect]
     Indication: HORMONE REPLACEMENT THERAPY

REACTIONS (10)
  - BREAST CANCER FEMALE [None]
  - BREAST PAIN [None]
  - DEPRESSION [None]
  - DISCOMFORT [None]
  - EMOTIONAL DISORDER [None]
  - INJURY [None]
  - MAMMOGRAM ABNORMAL [None]
  - MOVEMENT DISORDER [None]
  - PAIN IN EXTREMITY [None]
  - STRESS [None]
